FAERS Safety Report 5026661-4 (Version None)
Quarter: 2006Q2

REPORT INFORMATION
  Report Type: 
  Country: None (occurrence: None)
  Receive Date: 20060615
  Receipt Date: 20060428
  Transmission Date: 20061013
  Serious: Yes (Other)
  Sender: FDA-Public Use
  Company Number: NL-GLAXOSMITHKLINE-B0422781A

PATIENT
  Age: 15 Year
  Sex: Female

DRUGS (4)
  1. FLUTICASONE PROPIONATE [Suspect]
     Indication: ASTHMA
     Dosage: 200MCG PER DAY
     Route: 055
     Dates: start: 19940101
  2. SALBUTAMOL SULPHATE [Suspect]
     Indication: ASTHMA
     Dosage: 200MCG AS REQUIRED
     Route: 055
     Dates: start: 19940101
  3. NOVORAPID [Concomitant]
     Route: 065
     Dates: start: 20051001
  4. LEVEMIR [Concomitant]
     Dosage: 100IUML UNKNOWN
     Route: 065
     Dates: start: 20051001

REACTIONS (2)
  - BLOOD GLUCOSE INCREASED [None]
  - DIABETES MELLITUS [None]
